FAERS Safety Report 8765511 (Version 2)
Quarter: 2014Q1

REPORT INFORMATION
  Report Type: Spontaneous
  Country: US (occurrence: US)
  Receive Date: 20120903
  Receipt Date: 20140204
  Transmission Date: 20141002
  Serious: Yes (Other)
  Sender: FDA-Public Use
  Company Number: US-PFIZER INC-2012214515

PATIENT
  Sex: Male

DRUGS (2)
  1. NORPACE [Suspect]
     Dosage: UNK
  2. NORPACE CR [Suspect]
     Dosage: UNK

REACTIONS (2)
  - Hypoacusis [Unknown]
  - Dry mouth [Unknown]
